FAERS Safety Report 6595720-7 (Version None)
Quarter: 2010Q1

REPORT INFORMATION
  Report Type: 
  Country: None (occurrence: None)
  Receive Date: 20100223
  Receipt Date: 20100215
  Transmission Date: 20100710
  Serious: Yes (Hospitalization, Other)
  Sender: FDA-Public Use
  Company Number: US-JNJFOC-20100207469

PATIENT
  Sex: Female

DRUGS (1)
  1. REMICADE [Suspect]
     Indication: CROHN'S DISEASE
     Route: 042

REACTIONS (6)
  - ABNORMAL WEIGHT GAIN [None]
  - AUTOIMMUNE THYROIDITIS [None]
  - DEPRESSION [None]
  - ENDOMETRIOSIS [None]
  - GALLBLADDER DISORDER [None]
  - URINARY BLADDER POLYP [None]
